FAERS Safety Report 9196638 (Version 1)
Quarter: 2013Q1

REPORT INFORMATION
  Report Type: Spontaneous
  Country: NO (occurrence: NO)
  Receive Date: 20130328
  Receipt Date: 20130328
  Transmission Date: 20140127
  Serious: Yes (Life-Threatening, Hospitalization)
  Sender: FDA-Public Use
  Company Number: NO-MYLANLABS-2013S1006712

PATIENT
  Age: 56 Year
  Sex: Male

DRUGS (6)
  1. BACLOFEN [Suspect]
     Indication: PARAPARESIS
     Dosage: 25 MG + 25 MG + 50 MG PER DAY
     Route: 048
  2. BACLOFEN [Suspect]
     Indication: PARAPARESIS
     Route: 048
  3. MAREVAN [Concomitant]
     Indication: PRODUCT USED FOR UNKNOWN INDICATION
     Route: 048
  4. PANODIL [Concomitant]
     Indication: PRODUCT USED FOR UNKNOWN INDICATION
     Route: 048
  5. CEFOTAXIME [Concomitant]
     Indication: UROSEPSIS
     Route: 042
  6. LYRICA [Concomitant]
     Indication: NEURALGIA
     Dates: end: 20121001

REACTIONS (5)
  - Overdose [Recovered/Resolved]
  - Muscle spasms [Recovered/Resolved]
  - Respiratory arrest [Recovered/Resolved]
  - Coma [Recovered/Resolved]
  - Drug withdrawal syndrome [Recovering/Resolving]
